FAERS Safety Report 5046884-8 (Version None)
Quarter: 2006Q2

REPORT INFORMATION
  Report Type: 
  Country: None (occurrence: None)
  Receive Date: 20060601
  Receipt Date: 20060213
  Transmission Date: 20061013
  Serious: No
  Sender: FDA-Public Use
  Company Number: 2006PV008613

PATIENT
  Age: 49 Year
  Sex: Female

DRUGS (4)
  1. BYETTA [Suspect]
     Indication: DIABETES MELLITUS NON-INSULIN-DEPENDENT
     Dosage: 5 MCG;BID;SC
     Route: 058
     Dates: start: 20060101, end: 20060101
  2. GLIPIZIDE ER [Concomitant]
  3. METFORMIN [Concomitant]
  4. ACTOS [Concomitant]

REACTIONS (5)
  - DECREASED APPETITE [None]
  - DIZZINESS [None]
  - EYE PRURITUS [None]
  - EYE SWELLING [None]
  - URTICARIA [None]
